FAERS Safety Report 8512264-3 (Version None)
Quarter: 2012Q3

REPORT INFORMATION
  Report Type: 
  Country: None (occurrence: None)
  Receive Date: 20120716
  Receipt Date: 20120710
  Transmission Date: 20120928
  Serious: Yes (Disabling)
  Sender: FDA-Public Use
  Company Number: PHHY2012ES059706

PATIENT
  Age: 38 Year
  Sex: Male

DRUGS (2)
  1. IMATINIB MESYLATE [Suspect]
     Indication: CHRONIC MYELOID LEUKAEMIA
     Dosage: 400 MG, QD
     Route: 065
     Dates: start: 20110616, end: 20120301
  2. TASIGNA [Suspect]

REACTIONS (2)
  - MUSCLE SPASMS [None]
  - PELVIC PAIN [None]
